FAERS Safety Report 6979645-0 (Version None)
Quarter: 2010Q3

REPORT INFORMATION
  Report Type: 
  Country: None (occurrence: None)
  Receive Date: 20100910
  Receipt Date: 20100910
  Transmission Date: 20110219
  Serious: Yes (Hospitalization, Disabling)
  Sender: FDA-Public Use
  Company Number: None

PATIENT
  Age: 89 Year
  Sex: Female
  Weight: 56.6996 kg

DRUGS (1)
  1. TYLENOL [Suspect]
     Dosage: 200MG 4X DAILY ORAL
     Route: 048
     Dates: start: 20100629, end: 20100703

REACTIONS (2)
  - DEMENTIA [None]
  - DISORIENTATION [None]
